FAERS Safety Report 14423612 (Version 5)
Quarter: 2018Q2

REPORT INFORMATION
  Report Type: Spontaneous
  Country: US (occurrence: US)
  Receive Date: 20180123
  Receipt Date: 20180404
  Transmission Date: 20180711
  Serious: No
  Sender: FDA-Public Use
  Company Number: US-PFIZER INC-2018030197

PATIENT
  Age: 14 Year
  Sex: Male

DRUGS (4)
  1. SOLU-CORTEF [Concomitant]
     Active Substance: HYDROCORTISONE SODIUM SUCCINATE
     Dosage: 75 MG, AS NEEDED (DAILY, PRN)
     Route: 030
  2. GENOTROPIN [Suspect]
     Active Substance: SOMATROPIN
     Indication: BLOOD GROWTH HORMONE ABNORMAL
     Dosage: 1.4 MG, 1X/DAY (1.4 MG NIGHTLY=0.2 MG/KG/WEEK)
     Route: 058
  3. LEVOTHYROXINE. [Concomitant]
     Active Substance: LEVOTHYROXINE
     Dosage: 88 UG, DAILY
     Route: 048
  4. HYDROCORTISONE. [Concomitant]
     Active Substance: HYDROCORTISONE
     Dosage: 15 MG (1.5 TAB), AS NEEDED (Q6HR, PRN)
     Route: 048

REACTIONS (5)
  - Treatment noncompliance [Unknown]
  - Fatigue [Unknown]
  - Injection site pain [Unknown]
  - Drug dose omission [Unknown]
  - Asthenia [Unknown]
